FAERS Safety Report 7682947-6 (Version None)
Quarter: 2011Q3

REPORT INFORMATION
  Report Type: 
  Country: None (occurrence: None)
  Receive Date: 20110815
  Receipt Date: 20110810
  Transmission Date: 20111222
  Serious: Yes (Death, Other)
  Sender: FDA-Public Use
  Company Number: DK-ASTRAZENECA-2011SE47838

PATIENT
  Age: 49 Year

DRUGS (4)
  1. QUETIAPINE [Suspect]
     Route: 048
  2. OXAZEPAM [Suspect]
     Route: 065
  3. ZOPICLONE [Suspect]
     Route: 065
  4. AMLODIPINE [Suspect]
     Route: 065

REACTIONS (2)
  - DEATH [None]
  - TOXICITY TO VARIOUS AGENTS [None]
